FAERS Safety Report 18777860 (Version 3)
Quarter: 2021Q2

REPORT INFORMATION
  Report Type: Spontaneous
  Country: US (occurrence: US)
  Receive Date: 20210122
  Receipt Date: 20210423
  Transmission Date: 20210717
  Serious: No
  Sender: FDA-Public Use
  Company Number: 2020SGN03729

PATIENT
  Sex: Female

DRUGS (1)
  1. TUKYSA [Suspect]
     Active Substance: TUCATINIB
     Indication: BREAST CANCER FEMALE
     Route: 048

REACTIONS (13)
  - Somnolence [Unknown]
  - Asthenia [Unknown]
  - Insomnia [Unknown]
  - SARS-CoV-2 test positive [Unknown]
  - Dry skin [Unknown]
  - Diarrhoea [Unknown]
  - Constipation [Unknown]
  - Epistaxis [Unknown]
  - Abdominal distension [Unknown]
  - Disease progression [Unknown]
  - Haemorrhoidal haemorrhage [Unknown]
  - Dizziness [Unknown]
  - Abdominal pain upper [Unknown]
